FAERS Safety Report 25690944 (Version 1)
Quarter: 2025Q3

REPORT INFORMATION
  Report Type: Spontaneous
  Country: US (occurrence: None)
  Receive Date: 20250816
  Receipt Date: 20250816
  Transmission Date: 20251020
  Serious: Yes (Disabling)
  Sender: FDA-CTU
  Company Number: None

PATIENT
  Age: 47 Year
  Sex: Female
  Weight: 70.65 kg

DRUGS (3)
  1. SINUS RELIEF [Suspect]
     Active Substance: ACETAMINOPHEN\DIPHENHYDRAMINE HYDROCHLORIDE\GUAIFENESIN\PHENYLEPHRINE HYDROCHLORIDE
     Indication: Sinus pain
     Dosage: OTHER QUANTITY : 2 CAPSULE(S)?FREQUENCY : 4 TIMES A DAY?
     Route: 048
     Dates: start: 20250816, end: 20250816
  2. SINUS RELIEF [Suspect]
     Active Substance: ACETAMINOPHEN\DIPHENHYDRAMINE HYDROCHLORIDE\GUAIFENESIN\PHENYLEPHRINE HYDROCHLORIDE
     Indication: Nasal congestion
  3. ZINC [Concomitant]
     Active Substance: ZINC

REACTIONS (3)
  - Abdominal pain upper [None]
  - Abdominal discomfort [None]
  - Asthenia [None]

NARRATIVE: CASE EVENT DATE: 20250816
